FAERS Safety Report 21739595 (Version 1)
Quarter: 2022Q4

REPORT INFORMATION
  Report Type: Spontaneous
  Country: US (occurrence: US)
  Receive Date: 20221216
  Receipt Date: 20221216
  Transmission Date: 20230113
  Serious: Yes (Other)
  Sender: FDA-Public Use
  Company Number: US-ELI_LILLY_AND_COMPANY-US202212006919

PATIENT
  Sex: Female

DRUGS (3)
  1. HUMALOG [Suspect]
     Active Substance: INSULIN LISPRO
     Indication: Diabetes mellitus
     Dosage: 32 U, UNKNOWN, 18- 32 UNITS EACH MEAL DEPENDING ON BLOOD SUGARS
     Route: 058
  2. ACTOS [Suspect]
     Active Substance: PIOGLITAZONE HYDROCHLORIDE
     Indication: Diabetes mellitus
     Dosage: 2.5 MG, EACH MORNING
     Route: 065
  3. TOUJEO [Concomitant]
     Active Substance: INSULIN GLARGINE
     Indication: Diabetes mellitus
     Dosage: 42 U, DAILY, AT NIGHT

REACTIONS (6)
  - Carotid artery disease [Unknown]
  - Blood glucose increased [Unknown]
  - Glycosylated haemoglobin increased [Recovering/Resolving]
  - Hypoacusis [Not Recovered/Not Resolved]
  - Weight increased [Not Recovered/Not Resolved]
  - Malaise [Not Recovered/Not Resolved]

NARRATIVE: CASE EVENT DATE: 20130101
